FAERS Safety Report 9672343 (Version 1)
Quarter: 2013Q4

REPORT INFORMATION
  Report Type: Spontaneous
  Country: CA (occurrence: None)
  Receive Date: 20131105
  Receipt Date: 20131105
  Transmission Date: 20140711
  Serious: Yes (Other)
  Sender: FDA-Public Use
  Company Number: 2013AP009399

PATIENT
  Age: 31 Year
  Sex: Female

DRUGS (1)
  1. PAROXETINE (PAROXETINE) [Suspect]
     Indication: DEPRESSION

REACTIONS (8)
  - Psychotic disorder [None]
  - Maternal exposure during pregnancy [None]
  - Pre-eclampsia [None]
  - Brief psychotic disorder, with postpartum onset [None]
  - Hypersomnia [None]
  - Increased appetite [None]
  - Psychomotor retardation [None]
  - Caesarean section [None]
